FAERS Safety Report 8042815 (Version 8)
Quarter: 2012Q4

REPORT INFORMATION
  Report Type: 
  Country: US (occurrence: US)
  Receive Date: 20110718
  Receipt Date: 20120830
  Transmission Date: 20130627
  Serious: Yes (Other)
  Sender: FDA-Public Use
  Company Number: US-ASTRAZENECA-2011SE41513

PATIENT
  Age: 21228 Day
  Sex: Female

DRUGS (63)
  1. NEXIUM [Suspect]
     Indication: GASTROOESOPHAGEAL REFLUX DISEASE
     Route: 048
     Dates: start: 1995, end: 2010
  2. NEXIUM [Suspect]
     Indication: GASTROOESOPHAGEAL REFLUX DISEASE
     Route: 048
     Dates: start: 20021107
  3. NEXIUM [Suspect]
     Indication: GASTROOESOPHAGEAL REFLUX DISEASE
     Route: 048
     Dates: start: 20060207
  4. NEXIUM [Suspect]
     Indication: GASTROOESOPHAGEAL REFLUX DISEASE
     Route: 048
     Dates: start: 20061106
  5. NEXIUM [Suspect]
     Indication: GASTROOESOPHAGEAL REFLUX DISEASE
     Route: 048
     Dates: start: 20070526
  6. NEXIUM [Suspect]
     Indication: GASTROOESOPHAGEAL REFLUX DISEASE
     Dosage: 40 MG CAPSULE AS DIRECTED
     Route: 048
     Dates: start: 20110912
  7. PRILOSEC [Suspect]
     Indication: GASTROOESOPHAGEAL REFLUX DISEASE
     Route: 065
     Dates: start: 1995, end: 2010
  8. CEPHALEXIN [Concomitant]
     Dates: start: 20060315
  9. CEPHALEXIN [Concomitant]
     Dates: start: 20070529
  10. DIFLUCAN [Concomitant]
     Dates: start: 20060208
  11. PREDNISONE [Concomitant]
     Dates: start: 20060313
  12. PREDNISONE [Concomitant]
     Dosage: WITH FOOD OR MILK
     Dates: start: 20061002
  13. PREDNISONE [Concomitant]
     Dosage: 5-10 MG PRN
     Dates: start: 20060919
  14. VICODIN/NORCO [Concomitant]
     Indication: PAIN
     Dates: start: 20021107
  15. VICODIN/NORCO [Concomitant]
     Indication: PAIN
     Dosage: 10 MG-650 MG
     Dates: start: 20060203
  16. VICODIN/NORCO [Concomitant]
     Indication: PAIN
     Dosage: 5MG-500MG
     Dates: start: 20060220
  17. VICODIN/NORCO [Concomitant]
     Indication: PAIN
     Dosage: 7.5-325 MG TAKE ONE TABLET EVERY SIX HOURS
     Dates: start: 20070531
  18. VICODIN/NORCO [Concomitant]
     Indication: PAIN
     Dosage: 7.5-325 MG AS NEEDED FOR PAIN EVERY SIX HOURS
     Dates: start: 20110912
  19. RISPERDAL [Concomitant]
     Dates: start: 20040909
  20. RISPERDAL [Concomitant]
     Dates: start: 20060308
  21. AMITRIPTYLINE HCL [Concomitant]
     Dates: start: 20040909
  22. AMITRIPTYLINE HCL [Concomitant]
     Dates: start: 20060308
  23. TEQUIN [Concomitant]
     Dates: start: 20060227
  24. OMACOR [Concomitant]
     Dates: start: 20060223
  25. CORGARD [Concomitant]
     Dates: start: 20021107
  26. CORGARD [Concomitant]
     Dates: start: 20060223
  27. CORGARD [Concomitant]
     Dates: start: 20060920
  28. CORGARD [Concomitant]
     Dates: start: 20110912
  29. FIORICET [Concomitant]
     Indication: TENSION HEADACHE
     Dates: start: 20021107
  30. FIORICET [Concomitant]
     Indication: TENSION HEADACHE
     Dosage: 325-40-50
     Dates: start: 20060220
  31. FIORICET [Concomitant]
     Indication: TENSION HEADACHE
     Dosage: TAKE ONE TABLET 4 TIMES DAILY AS NEEDED
     Dates: start: 20060911
  32. FIORICET [Concomitant]
     Indication: TENSION HEADACHE
     Dosage: 50-325-40 1 TABLET AS NEEDED EVERY FOUR HOURS
     Dates: start: 20110912
  33. BIAXIN XL [Concomitant]
     Dates: start: 20060220
  34. ZYRTEC [Concomitant]
     Dates: start: 20060220
  35. METHYLPREDNISOLONE [Concomitant]
     Dates: start: 20060216
  36. ROBAXIN [Concomitant]
     Dates: start: 20060216
  37. ROBAXIN [Concomitant]
     Dates: start: 20070531
  38. ROBAXIN [Concomitant]
     Dosage: 750 MG EVERY 4-6 HOURS PRN
     Route: 048
     Dates: start: 20070905
  39. ROBAXIN [Concomitant]
     Dosage: 450 MG TABLET 1 TABLET EVERY FOUR HRS PRN
     Dates: start: 20110912
  40. LOMOTIL [Concomitant]
     Dosage: 2.5-0.25 MG
     Dates: start: 20060210
  41. CLONAZEPAM/KLONOPIN [Concomitant]
     Dates: start: 20060208
  42. CLONAZEPAM/KLONOPIN [Concomitant]
     Dates: start: 20070613
  43. CLONAZEPAM/KLONOPIN [Concomitant]
     Dates: start: 20110912
  44. CELEBREX [Concomitant]
     Dates: start: 20021107
  45. CELEBREX [Concomitant]
     Dates: start: 20060201
  46. CELEBREX [Concomitant]
     Dosage: WITH FOOD OR MILK
     Dates: start: 20060920
  47. BUT/ASA/CAFF [Concomitant]
     Indication: PAIN
     Dosage: 50/325/40 MG TAKE ONE TABLET EVERY FOUR HOURS AS NEEDED
     Dates: start: 20070521
  48. BUT/ASA/CAFF [Concomitant]
     Indication: PAIN
     Dosage: TAKE ONE CAPSULE EVERY SIX HOURS AS NEEDED
     Dates: start: 20070521
  49. IMITREX [Concomitant]
     Indication: HEADACHE
     Dates: start: 2006
  50. IMITREX [Concomitant]
     Indication: HEADACHE
     Dosage: 50 MG TABLET TAKE ONE TABLET AT ONSET OF HEADACHE AND REPEAT IN TWO HOURS IF NEEDED
     Dates: start: 20070526
  51. LYRICA [Concomitant]
     Dates: start: 20070618
  52. LYRICA [Concomitant]
     Dates: start: 20110912
  53. CELEXA [Concomitant]
     Dates: start: 20021107
  54. CELEXA [Concomitant]
     Dates: start: 20041009
  55. CELEXA [Concomitant]
     Dates: start: 20110912
  56. ELAVIL [Concomitant]
     Dates: start: 20021107
  57. ELAVIL [Concomitant]
     Dates: start: 20110912
  58. STELEZINE [Concomitant]
     Dates: start: 20021107
  59. CLARITIN D [Concomitant]
     Dosage: ONE TABLET PER DAY PRN
     Route: 048
     Dates: start: 20070905
  60. BENADRYL [Concomitant]
     Dosage: 25 MG TWO TABLET PER DAY PRN
     Route: 048
     Dates: start: 20070905
  61. LIBRIUM [Concomitant]
     Dosage: 10 MG PRN
     Dates: start: 20060919
  62. SKELAXIN [Concomitant]
     Dates: start: 20110912
  63. DEPOMEDROL [Concomitant]

REACTIONS (7)
  - Foot fracture [Unknown]
  - Mental disorder [Unknown]
  - Pain [Unknown]
  - Osteoporosis [Unknown]
  - Pain in extremity [Unknown]
  - Osteopenia [Unknown]
  - Osteoarthritis [Unknown]
